FAERS Safety Report 4825029-0 (Version None)
Quarter: 2005Q4

REPORT INFORMATION
  Report Type: 
  Country: None (occurrence: None)
  Receive Date: 20051108
  Receipt Date: 20051026
  Transmission Date: 20060501
  Serious: Yes (Hospitalization)
  Sender: FDA-Public Use
  Company Number: SGB1-2005-00489

PATIENT
  Age: 65 Year
  Sex: Male

DRUGS (18)
  1. LANTHANUM CARBONATE(LANTHANUM CARBONATE) TABLET CHEWABLE [Suspect]
     Indication: HYPERPHOSPHATAEMIA
     Dosage: SEE IMAGE
     Route: 048
     Dates: start: 20050308, end: 20050418
  2. LANTHANUM CARBONATE(LANTHANUM CARBONATE) TABLET CHEWABLE [Suspect]
     Indication: HYPERPHOSPHATAEMIA
     Dosage: SEE IMAGE
     Route: 048
     Dates: start: 20050419, end: 20051006
  3. FAMOTIDINE [Concomitant]
  4. ALFAROL (ALFACALCIDOL) [Concomitant]
  5. NOVOLIN (INSULIN INJECTION, BIPHASIC) [Concomitant]
  6. ISOSORBIDE MONONITRATE [Concomitant]
  7. VALSARTAN [Concomitant]
  8. HEPARIN [Concomitant]
  9. STREPTOCOCCUS FAECALIS (STREPTOCOCCUS FAECALIS) [Concomitant]
  10. ASPIRIN [Concomitant]
  11. TICLOPIDINE HCL [Concomitant]
  12. NOVOLIN R [Concomitant]
  13. COCARBOXYLASE (COCARBOXYLASE) [Concomitant]
  14. FLAVITAN (FLAVINE ADENINE DINUCLEOTIDE) [Concomitant]
  15. PYRIDOXINE HCL [Concomitant]
  16. VITAMIN C (ASCORBIC ACID) [Concomitant]
  17. KIDMIN (AMINO ACIDS NOS) [Concomitant]
  18. OMEPRAZOLE [Concomitant]

REACTIONS (9)
  - ABDOMINAL PAIN [None]
  - COLONIC POLYP [None]
  - CONSTIPATION [None]
  - DIARRHOEA HAEMORRHAGIC [None]
  - FAECES DISCOLOURED [None]
  - HAEMATOCRIT DECREASED [None]
  - HAEMOGLOBIN DECREASED [None]
  - MELAENA [None]
  - THROMBOSIS [None]
